FAERS Safety Report 19008411 (Version 2)
Quarter: 2021Q2

REPORT INFORMATION
  Report Type: Spontaneous
  Country: US (occurrence: US)
  Receive Date: 20210315
  Receipt Date: 20210531
  Transmission Date: 20210717
  Serious: No
  Sender: FDA-Public Use
  Company Number: US-SA-2021SA084740

PATIENT
  Age: 53 Year
  Sex: Male

DRUGS (3)
  1. FOLIC ACID. [Concomitant]
     Active Substance: FOLIC ACID
  2. KEVZARA [Suspect]
     Active Substance: SARILUMAB
     Indication: RHEUMATOID ARTHRITIS
     Route: 058
  3. METHOTREXATE. [Concomitant]
     Active Substance: METHOTREXATE

REACTIONS (6)
  - Pyrexia [Not Recovered/Not Resolved]
  - Anxiety [Not Recovered/Not Resolved]
  - Liver function test increased [Unknown]
  - Fatigue [Not Recovered/Not Resolved]
  - Inappropriate schedule of product administration [Unknown]
  - Inflammation [Unknown]
